FAERS Safety Report 23374722 (Version 8)
Quarter: 2024Q2

REPORT INFORMATION
  Report Type: Report from Study
  Country: US (occurrence: US)
  Receive Date: 20240105
  Receipt Date: 20240418
  Transmission Date: 20240715
  Serious: Yes (Life-Threatening, Hospitalization, Disabling, Other)
  Sender: FDA-Public Use
  Company Number: US-ABBVIE-5570728

PATIENT
  Age: 20 Year
  Sex: Male
  Weight: 114 kg

DRUGS (7)
  1. HUMIRA [Suspect]
     Active Substance: ADALIMUMAB
     Indication: Crohn^s disease
     Route: 058
     Dates: start: 20150415, end: 20210111
  2. HUMIRA [Suspect]
     Active Substance: ADALIMUMAB
     Dosage: FREQUENCY: 2 ADMINISTRATIONS
     Route: 058
     Dates: start: 20190518, end: 20190525
  3. PREDNISONE [Concomitant]
     Active Substance: PREDNISONE
     Indication: Crohn^s disease
     Route: 048
     Dates: start: 20161127
  4. ENTOCORT [Concomitant]
     Active Substance: BUDESONIDE
     Indication: Crohn^s disease
     Route: 048
     Dates: start: 20190422
  5. METHOTREXATE [Suspect]
     Active Substance: METHOTREXATE
     Indication: Crohn^s disease
     Route: 048
     Dates: start: 20150528, end: 20161101
  6. METHOTREXATE [Suspect]
     Active Substance: METHOTREXATE
     Indication: Crohn^s disease
     Route: 048
     Dates: start: 20161118, end: 20161127
  7. METHOTREXATE [Suspect]
     Active Substance: METHOTREXATE
     Indication: Crohn^s disease
     Route: 048
     Dates: start: 20170324

REACTIONS (2)
  - Metastatic lymphoma [Not Recovered/Not Resolved]
  - Stomal hernia [Recovered/Resolved]

NARRATIVE: CASE EVENT DATE: 20231016
